FAERS Safety Report 24759477 (Version 2)
Quarter: 2025Q2

REPORT INFORMATION
  Report Type: Spontaneous
  Country: FR (occurrence: FR)
  Receive Date: 20241220
  Receipt Date: 20250509
  Transmission Date: 20250716
  Serious: Yes (Other)
  Sender: PFIZER
  Company Number: FR-PFIZER INC-2019165838

PATIENT
  Age: 10 Year
  Sex: Female

DRUGS (4)
  1. RIFABUTIN [Interacting]
     Active Substance: RIFABUTIN
     Indication: Mycobacterium avium complex infection
     Dosage: 150 MG, 1X/DAY
     Route: 048
  2. RIFABUTIN [Interacting]
     Active Substance: RIFABUTIN
     Dosage: 100 MG, 1X/DAY
     Route: 048
  3. CLARITHROMYCIN [Interacting]
     Active Substance: CLARITHROMYCIN
     Indication: Mycobacterium avium complex infection
  4. ETHAMBUTOL [Concomitant]
     Active Substance: ETHAMBUTOL HYDROCHLORIDE
     Indication: Mycobacterium avium complex infection

REACTIONS (3)
  - Iridocyclitis [Recovering/Resolving]
  - Hypopyon [Unknown]
  - Drug interaction [Unknown]
